FAERS Safety Report 10040585 (Version 1)
Quarter: 2014Q1

REPORT INFORMATION
  Report Type: Spontaneous
  Country: US (occurrence: None)
  Receive Date: 20140326
  Receipt Date: 20140326
  Transmission Date: 20141002
  Serious: Yes (Death, Life-Threatening, Hospitalization, Disabling, Other)
  Sender: FDA-Public Use
  Company Number: None

PATIENT
  Sex: Female
  Weight: 81.65 kg

DRUGS (2)
  1. GRANUFLO [Suspect]
     Indication: RENAL DISORDER
     Dosage: THROUGH A MACHINE
     Dates: start: 2009, end: 2011
  2. NATURALYTE [Suspect]

REACTIONS (1)
  - Cerebrovascular accident [None]
